FAERS Safety Report 20982982 (Version 1)
Quarter: 2022Q2

REPORT INFORMATION
  Report Type: Spontaneous
  Country: JP (occurrence: JP)
  Receive Date: 20220620
  Receipt Date: 20220620
  Transmission Date: 20220720
  Serious: Yes (Other)
  Sender: FDA-Public Use
  Company Number: JP-ALLERGAN-2218360US

PATIENT
  Sex: Female

DRUGS (2)
  1. ALPHAGAN P [Suspect]
     Active Substance: BRIMONIDINE TARTRATE
     Indication: Glaucoma
     Dosage: 2 DROPS DAILY
     Route: 047
     Dates: start: 20200716, end: 20220426
  2. XALATAN [Concomitant]
     Active Substance: LATANOPROST
     Indication: Visual field defect
     Dosage: 1 DROP A DAY
     Route: 047
     Dates: start: 20181023

REACTIONS (1)
  - Depressed level of consciousness [Recovered/Resolved]
